FAERS Safety Report 8586388-9 (Version None)
Quarter: 2012Q3

REPORT INFORMATION
  Report Type: 
  Country: None (occurrence: None)
  Receive Date: 20120810
  Receipt Date: 20120803
  Transmission Date: 20120928
  Serious: Yes (Other)
  Sender: FDA-Public Use
  Company Number: BR-PFIZER INC-2012153084

PATIENT
  Age: 47 Year
  Sex: Female
  Weight: 85 kg

DRUGS (3)
  1. LYRICA [Suspect]
     Dosage: 75 MG, 2 TO 3 TIMES A DAY (AS NEEDED)
     Route: 048
  2. LYRICA [Suspect]
     Indication: PAIN
     Dosage: 75 MG 1XDAY
     Route: 048
     Dates: start: 20110625
  3. DIPYRONE INJ [Concomitant]
     Dosage: UNK

REACTIONS (3)
  - INTERVERTEBRAL DISC DEGENERATION [None]
  - INTERVERTEBRAL DISC PROTRUSION [None]
  - PAIN [None]
